FAERS Safety Report 6924336-5 (Version None)
Quarter: 2010Q3

REPORT INFORMATION
  Report Type: 
  Country: None (occurrence: None)
  Receive Date: 20100811
  Receipt Date: 20100811
  Transmission Date: 20110219
  Serious: Yes (Hospitalization)
  Sender: FDA-Public Use
  Company Number: None

PATIENT
  Sex: Female
  Weight: 65.7716 kg

DRUGS (2)
  1. BENDAMUSTIN 120MG/M2 CEPHALON [Suspect]
     Indication: BREAST CANCER
     Dosage: 198MG D1+2 Q 28 DAYS IV
     Route: 042
     Dates: start: 20100128, end: 20100618
  2. ERLOTINIB HYDROCHLORIDE [Suspect]
     Indication: BREAST CANCER
     Dosage: 150MG D5-21 Q28DYAS PO
     Route: 048
     Dates: start: 20100201, end: 20100707

REACTIONS (5)
  - ANAEMIA [None]
  - CHILLS [None]
  - FEBRILE NEUTROPENIA [None]
  - LEUKOPENIA [None]
  - LUNG DISORDER [None]
